FAERS Safety Report 8387458-0 (Version None)
Quarter: 2012Q2

REPORT INFORMATION
  Report Type: 
  Country: None (occurrence: None)
  Receive Date: 20120525
  Receipt Date: 20120522
  Transmission Date: 20120825
  Serious: Yes (Death)
  Sender: FDA-Public Use
  Company Number: AR-GENZYME-CLOF-1001748

PATIENT
  Age: 12 Year
  Sex: Female

DRUGS (3)
  1. ETOPOSIDE [Suspect]
     Indication: ACUTE LYMPHOCYTIC LEUKAEMIA
     Dosage: UNK
     Route: 065
     Dates: start: 20110701
  2. CLOLAR [Suspect]
     Indication: ACUTE LYMPHOCYTIC LEUKAEMIA
     Dosage: UNK
     Route: 065
     Dates: start: 20110701
  3. CYTOXAN [Suspect]
     Indication: ACUTE LYMPHOCYTIC LEUKAEMIA
     Dosage: UNK
     Route: 065
     Dates: start: 20110701

REACTIONS (3)
  - NEUTROPENIA [None]
  - PYREXIA [None]
  - ACUTE LYMPHOCYTIC LEUKAEMIA [None]
